FAERS Safety Report 9391160 (Version 1)
Quarter: 2013Q3

REPORT INFORMATION
  Report Type: Spontaneous
  Country: FR (occurrence: FR)
  Receive Date: 20130709
  Receipt Date: 20130709
  Transmission Date: 20140515
  Serious: Yes (Other)
  Sender: FDA-Public Use
  Company Number: FR-JNJFOC-20130617808

PATIENT
  Age: 49 Year
  Sex: Male

DRUGS (6)
  1. INFLIXIMAB, RECOMBINANT [Suspect]
     Indication: COLITIS ULCERATIVE
     Route: 042
  2. INFLIXIMAB, RECOMBINANT [Suspect]
     Indication: COLITIS ULCERATIVE
     Route: 042
  3. AZATHIOPRINE [Suspect]
     Indication: COLITIS ULCERATIVE
     Route: 065
  4. AZATHIOPRINE [Suspect]
     Indication: COLITIS ULCERATIVE
     Route: 065
     Dates: start: 200801
  5. CYCLOSPORIN [Suspect]
     Indication: COLITIS ULCERATIVE
     Route: 042
  6. CYCLOSPORIN [Suspect]
     Indication: COLITIS ULCERATIVE
     Route: 048

REACTIONS (4)
  - Treatment failure [Recovered/Resolved]
  - Human herpesvirus 8 infection [Recovered/Resolved]
  - Kaposi^s sarcoma [Recovered/Resolved]
  - Immunosuppression [Recovered/Resolved]
